FAERS Safety Report 12002027 (Version 2)
Quarter: 2016Q1

REPORT INFORMATION
  Report Type: Spontaneous
  Country: JP (occurrence: JP)
  Receive Date: 20160204
  Receipt Date: 20160304
  Transmission Date: 20160526
  Serious: Yes (Hospitalization, Other)
  Sender: FDA-Public Use
  Company Number: JP-GILEAD-2016-0195266AA

PATIENT
  Age: 67 Year
  Sex: Female

DRUGS (21)
  1. HARVONI [Suspect]
     Active Substance: LEDIPASVIR\SOFOSBUVIR
     Indication: CHRONIC HEPATITIS C
     Dosage: 1 DF, QD, MORNING
     Route: 048
     Dates: start: 20151008, end: 20151231
  2. CANDESARTAN [Concomitant]
     Active Substance: CANDESARTAN
     Dosage: 8 MG, QD, MORNING
     Route: 048
  3. STROCAIN                           /00130301/ [Concomitant]
     Dosage: 5 MG, UNK
     Route: 048
  4. CELECOX [Concomitant]
     Active Substance: CELECOXIB
     Dosage: 100 MG, UNK
     Route: 048
  5. MEDICON                            /00048102/ [Concomitant]
     Active Substance: DEXTROMETHORPHAN HYDROBROMIDE
     Dosage: 30 MG, TID, MORNING, NOON AND EVENING
     Route: 048
  6. SHAKUYAKUKANZOTO [Concomitant]
     Active Substance: HERBALS
     Indication: MYALGIA
     Dosage: 1 DF, PRN, 1 SACHET EACH TIME IN THE MORNING AND EVENING
     Route: 048
  7. MUCOSTA [Concomitant]
     Active Substance: REBAMIPIDE
     Dosage: 100 MG, UNK
     Route: 048
  8. MYONAL                             /00287502/ [Concomitant]
     Active Substance: EPERISONE HYDROCHLORIDE
     Dosage: 50 MG, UNK
     Route: 048
  9. JANUVIA [Concomitant]
     Active Substance: SITAGLIPTIN PHOSPHATE
     Indication: DIABETES MELLITUS
     Dosage: 50 MG, QD, MORNING
     Route: 048
  10. BISOPROLOL FUMARATE. [Concomitant]
     Active Substance: BISOPROLOL FUMARATE
     Dosage: 2.5 MG, QD, MORNING
     Route: 048
  11. URSO [Concomitant]
     Active Substance: URSODIOL
     Dosage: 300 MG, TID, MORNING, NOON AND EVENING
     Route: 048
  12. GASTER [Concomitant]
     Active Substance: FAMOTIDINE
     Dosage: 10 MG, UNK
     Route: 048
  13. ALENDRONATE [Concomitant]
     Active Substance: ALENDRONATE SODIUM
     Dosage: 35 MG, Q1WK, AFTER WAKING UP
     Route: 048
  14. AMARYL [Concomitant]
     Active Substance: GLIMEPIRIDE
     Indication: DIABETES MELLITUS
     Dosage: 2 MG, QD, MORNING
     Route: 048
  15. SELBEX [Concomitant]
     Active Substance: TEPRENONE
     Dosage: UNK
     Route: 048
  16. LYRICA [Concomitant]
     Active Substance: PREGABALIN
     Dosage: 75 MG, BID, MORNING AND EVENING
     Route: 048
  17. CALONAL [Concomitant]
     Active Substance: ACETAMINOPHEN
     Indication: PYREXIA
     Dosage: 400 MG, PRN, AT THE ONSET OF FEVER OR HEADACHE, 2 TABLETS EACH TIME
     Route: 048
  18. VOGLIBOSE [Concomitant]
     Active Substance: VOGLIBOSE
     Indication: DIABETES MELLITUS
     Dosage: 0.2 MG, TID, BEFORE EACH MEAL
     Route: 048
  19. LIMAPROST ALFADEX [Concomitant]
     Active Substance: LIMAPROST
     Dosage: 5 UG, TID, MORNING, NOON AND EVENING
     Route: 048
  20. MUCODYNE [Concomitant]
     Active Substance: CARBOCYSTEINE
     Dosage: 500 MG, TID, MORNING, NOON AND EVENING
     Route: 048
  21. ASVERIN                            /00465502/ [Concomitant]
     Dosage: 40 MG, QHS
     Route: 048

REACTIONS (1)
  - Putamen haemorrhage [Recovered/Resolved]

NARRATIVE: CASE EVENT DATE: 20151107
